FAERS Safety Report 5786327-X (Version None)
Quarter: 2008Q2

REPORT INFORMATION
  Report Type: 
  Country: None (occurrence: None)
  Receive Date: 20080624
  Receipt Date: 20070723
  Transmission Date: 20081010
  Serious: No
  Sender: FDA-Public Use
  Company Number: US-ASTRAZENECA-2007UW17780

PATIENT
  Age: 81 Year
  Sex: Female
  Weight: 51.7 kg

DRUGS (7)
  1. PULMICORT [Suspect]
     Indication: ASTHMA
     Dosage: 1 PUFF BID
     Route: 055
  2. TRANXENE [Concomitant]
  3. NEXIUM [Concomitant]
     Route: 048
  4. ASPIRIN [Concomitant]
  5. LORTAB [Concomitant]
  6. ALTACE [Concomitant]
  7. TIAZAC [Concomitant]

REACTIONS (3)
  - CHILLS [None]
  - FEELING COLD [None]
  - HYPERHIDROSIS [None]
